FAERS Safety Report 23534654 (Version 1)
Quarter: 2024Q1

REPORT INFORMATION
  Report Type: Report from Study
  Country: CA (occurrence: CA)
  Receive Date: 20240217
  Receipt Date: 20240217
  Transmission Date: 20240409
  Serious: Yes (Other)
  Sender: FDA-Public Use
  Company Number: CA-ABBVIE-5638790

PATIENT
  Sex: Male

DRUGS (1)
  1. HUMIRA [Suspect]
     Active Substance: ADALIMUMAB
     Indication: Crohn^s disease
     Route: 058
     Dates: start: 20151023

REACTIONS (10)
  - Colectomy [Unknown]
  - Polyp [Unknown]
  - Macular degeneration [Unknown]
  - Dry skin [Unknown]
  - Blister [Unknown]
  - Skin haemorrhage [Unknown]
  - Diverticulitis [Unknown]
  - Arthralgia [Unknown]
  - Adverse food reaction [Unknown]
  - Constipation [Unknown]

NARRATIVE: CASE EVENT DATE: 20231015
